FAERS Safety Report 17364687 (Version 1)
Quarter: 2020Q1

REPORT INFORMATION
  Report Type: Spontaneous
  Country: BR (occurrence: BR)
  Receive Date: 20200204
  Receipt Date: 20200204
  Transmission Date: 20200409
  Serious: Yes (Death, Hospitalization, Other)
  Sender: FDA-Public Use
  Company Number: BR-ASTELLAS-2020US003422

PATIENT
  Age: 70 Year
  Sex: Female

DRUGS (1)
  1. SOLIFENACIN [Suspect]
     Active Substance: SOLIFENACIN
     Indication: URINARY TRACT INFECTION
     Route: 048
     Dates: start: 20191003, end: 20191117

REACTIONS (9)
  - Death [Fatal]
  - Constipation [Fatal]
  - Abdominal pain upper [Fatal]
  - Nosocomial infection [Unknown]
  - Gastrointestinal disorder [Unknown]
  - Abdominal distension [Fatal]
  - Product use in unapproved indication [Recovered/Resolved]
  - Dyspepsia [Fatal]
  - Fatigue [Fatal]

NARRATIVE: CASE EVENT DATE: 20191003
